FAERS Safety Report 8769598 (Version 1)
Quarter: 2012Q4

REPORT INFORMATION
  Report Type: 
  Country: None (occurrence: IT)
  Receive Date: 20120905
  Receipt Date: 20120905
  Transmission Date: 20130627
  Serious: Yes (Hospitalization)
  Sender: FDA-Public Use
  Company Number: IT-ACCORD-014575

PATIENT
  Age: 64 Year
  Sex: Male

DRUGS (9)
  1. GEMCITABINE [Suspect]
     Indication: ADENOCARCINOMA OF LUNG
     Dosage: Frequency: Total
     Route: 042
     Dates: start: 20120712, end: 20120712
  2. CARBOPLATIN [Suspect]
     Indication: ADENOCARCINOMA OF LUNG
     Dosage: Frequency: Total
     Route: 042
     Dates: start: 20120712, end: 20120712
  3. UNSPECIFIED INGREDIENT [Concomitant]
  4. FRAGMIN [Concomitant]
  5. TACHIDOL [Concomitant]
  6. ORAMORPH [Concomitant]
  7. MEDROL [Concomitant]
  8. CLENIL [Concomitant]
  9. OXIVENT [Concomitant]

REACTIONS (3)
  - Hepatitis acute [Unknown]
  - Off label use [Unknown]
  - Hyperchlorhydria [None]
